FAERS Safety Report 17416118 (Version 6)
Quarter: 2025Q1

REPORT INFORMATION
  Report Type: Report from Study
  Country: CA (occurrence: CA)
  Receive Date: 20200213
  Receipt Date: 20250306
  Transmission Date: 20250408
  Serious: Yes (Other)
  Sender: JOHNSON AND JOHNSON
  Company Number: CA-JNJFOC-20190742163

PATIENT
  Age: 57 Year
  Sex: Male

DRUGS (3)
  1. SIMPONI [Suspect]
     Active Substance: GOLIMUMAB
     Indication: Psoriatic arthropathy
     Route: 058
     Dates: start: 20110705
  2. SIMPONI [Suspect]
     Active Substance: GOLIMUMAB
     Indication: Psoriatic arthropathy
     Dosage: Q4 /52
     Route: 058
     Dates: start: 20150205
  3. SIMPONI [Suspect]
     Active Substance: GOLIMUMAB
     Route: 058

REACTIONS (4)
  - Neoplasm malignant [Unknown]
  - Psoriatic arthropathy [Unknown]
  - Off label use [Unknown]
  - Therapy change [Unknown]

NARRATIVE: CASE EVENT DATE: 20191101
